FAERS Safety Report 11582805 (Version 1)
Quarter: 2015Q3

REPORT INFORMATION
  Report Type: Spontaneous
  Country: US (occurrence: None)
  Receive Date: 20150930
  Receipt Date: 20150930
  Transmission Date: 20151125
  Serious: Yes (Other)
  Sender: FDA-Public Use
  Company Number: None

PATIENT
  Age: 55 Year
  Sex: Female
  Weight: 58.06 kg

DRUGS (7)
  1. VAPE OIL WITH CBD ALTERNATE VAPE 5 ML (25 MG OF CBD) [Suspect]
     Active Substance: CANNABIDIOL
     Indication: ANALGESIC THERAPY
     Dosage: 3 DROPS WITH MY ^USUAL^ OIL
     Route: 055
  2. ADDERALL [Concomitant]
     Active Substance: AMPHETAMINE ASPARTATE\AMPHETAMINE SULFATE\DEXTROAMPHETAMINE SACCHARATE\DEXTROAMPHETAMINE SULFATE
  3. MOBIC [Concomitant]
     Active Substance: MELOXICAM
  4. CYMBALTA [Concomitant]
     Active Substance: DULOXETINE HYDROCHLORIDE
  5. FOLIC ACID. [Concomitant]
     Active Substance: FOLIC ACID
  6. HIGH BLOOD PRESSURE [Concomitant]
  7. TYLENOL, ALLERGY [Concomitant]

REACTIONS (1)
  - Drug ineffective [None]
